FAERS Safety Report 12941368 (Version 2)
Quarter: 2017Q1

REPORT INFORMATION
  Report Type: Spontaneous
  Country: FR (occurrence: FR)
  Receive Date: 20161115
  Receipt Date: 20170106
  Transmission Date: 20170428
  Serious: Yes (Hospitalization)
  Sender: FDA-Public Use
  Company Number: FR-VELOXIS PHARMACEUTICALS-1059523

PATIENT
  Age: 49 Year
  Sex: Male

DRUGS (21)
  1. CORTANCYL [Suspect]
     Active Substance: PREDNISONE
     Route: 048
     Dates: start: 20161004
  2. ENVARSUS XR [Suspect]
     Active Substance: TACROLIMUS
     Route: 048
     Dates: start: 20161009, end: 20161014
  3. RENAGEL [Concomitant]
     Active Substance: SEVELAMER HYDROCHLORIDE
  4. EUPANTOL [Concomitant]
     Active Substance: PANTOPRAZOLE SODIUM
  5. HYPERIUM [Concomitant]
     Active Substance: RILMENIDINE PHOSPHATE
  6. ENVARSUS XR [Suspect]
     Active Substance: TACROLIMUS
     Indication: PROPHYLAXIS AGAINST TRANSPLANT REJECTION
     Route: 048
     Dates: start: 20161002, end: 20161006
  7. BACTRIM [Suspect]
     Active Substance: SULFAMETHOXAZOLE\TRIMETHOPRIM
     Route: 048
     Dates: start: 20161002
  8. CORTANCYL [Suspect]
     Active Substance: PREDNISONE
     Route: 048
     Dates: start: 20161018
  9. TAHOR [Concomitant]
     Active Substance: ATORVASTATIN CALCIUM
  10. CELLCEPT [Suspect]
     Active Substance: MYCOPHENOLATE MOFETIL\MYCOPHENOLATE MOFETIL HYDROCHLORIDE
     Route: 048
     Dates: start: 20161002
  11. ENVARSUS XR [Suspect]
     Active Substance: TACROLIMUS
     Route: 048
     Dates: start: 20161007, end: 20161008
  12. EUPRESSYL [Concomitant]
     Active Substance: URAPIDIL
  13. CELLCEPT [Suspect]
     Active Substance: MYCOPHENOLATE MOFETIL\MYCOPHENOLATE MOFETIL HYDROCHLORIDE
     Route: 048
     Dates: start: 20161003
  14. TEMERIT [Concomitant]
     Active Substance: NEBIVOLOL
  15. DUPHALAC [Concomitant]
     Active Substance: LACTULOSE
  16. LERCAN [Concomitant]
     Active Substance: LERCANIDIPINE
  17. UVEDOSE [Concomitant]
     Active Substance: CHOLECALCIFEROL
  18. COVERSYL [Concomitant]
     Active Substance: PERINDOPRIL
  19. INEXIUM [Concomitant]
     Active Substance: ESOMEPRAZOLE
  20. ENVARSUS XR [Suspect]
     Active Substance: TACROLIMUS
     Dates: start: 20161015
  21. APROVEL [Concomitant]
     Active Substance: IRBESARTAN

REACTIONS (1)
  - Hallucination [Not Recovered/Not Resolved]

NARRATIVE: CASE EVENT DATE: 20161010
